FAERS Safety Report 12368414 (Version 2)
Quarter: 2016Q2

REPORT INFORMATION
  Report Type: Spontaneous
  Country: US (occurrence: US)
  Receive Date: 20160513
  Receipt Date: 20160615
  Transmission Date: 20160815
  Serious: Yes (Hospitalization, Other)
  Sender: FDA-Public Use
  Company Number: US-ASTRAZENECA-2016SE49399

PATIENT
  Age: 68 Year
  Sex: Female
  Weight: 93.4 kg

DRUGS (6)
  1. ASPIRIN. [Concomitant]
     Active Substance: ASPIRIN
     Indication: ADJUVANT THERAPY
     Route: 048
     Dates: start: 20151121
  2. COREG [Concomitant]
     Active Substance: CARVEDILOL
     Indication: CARDIOMYOPATHY
     Route: 048
     Dates: start: 2009
  3. BRILINTA [Suspect]
     Active Substance: TICAGRELOR
     Indication: STENT PLACEMENT
     Route: 048
     Dates: start: 20151121
  4. METFORMIN [Concomitant]
     Active Substance: METFORMIN HYDROCHLORIDE
     Indication: BLOOD GLUCOSE ABNORMAL
     Route: 048
  5. COREG [Concomitant]
     Active Substance: CARVEDILOL
     Indication: CARDIAC DISORDER
     Route: 048
     Dates: start: 2009
  6. LEVOXYL [Concomitant]
     Active Substance: LEVOTHYROXINE SODIUM
     Indication: THYROID DISORDER
     Dosage: 250UG, DAILY GENERIC
     Route: 048
     Dates: start: 1996

REACTIONS (7)
  - Contusion [Unknown]
  - Dizziness [Not Recovered/Not Resolved]
  - Gastrointestinal vascular malformation [Unknown]
  - Dyspnoea [Unknown]
  - Blood count abnormal [Unknown]
  - Blood pressure decreased [Unknown]
  - Haemorrhage [Recovered/Resolved]

NARRATIVE: CASE EVENT DATE: 201511
